FAERS Safety Report 16041915 (Version 3)
Quarter: 2019Q2

REPORT INFORMATION
  Report Type: Spontaneous
  Country: US (occurrence: US)
  Receive Date: 20190306
  Receipt Date: 20190416
  Transmission Date: 20190711
  Serious: Yes (Other)
  Sender: FDA-Public Use
  Company Number: US-PFIZER INC-2019090691

PATIENT
  Age: 47 Year
  Sex: Female
  Weight: 82 kg

DRUGS (2)
  1. EFFEXOR XR [Suspect]
     Active Substance: VENLAFAXINE HYDROCHLORIDE
     Indication: STRESS
     Dosage: 202.5 MG, DAILY (QTY 42 /DAYS SUPPLY 31)
  2. EFFEXOR XR [Suspect]
     Active Substance: VENLAFAXINE HYDROCHLORIDE
     Dosage: 300 MG, DAILY (75 MG CAPSULE / QTY 120 / DAYS)

REACTIONS (4)
  - Mast cell activation syndrome [Not Recovered/Not Resolved]
  - Major depression [Unknown]
  - Prescribed overdose [Unknown]
  - Sleep terror [Unknown]
